FAERS Safety Report 14536559 (Version 1)
Quarter: 2018Q1

REPORT INFORMATION
  Report Type: Spontaneous
  Country: US (occurrence: US)
  Receive Date: 20180215
  Receipt Date: 20180215
  Transmission Date: 20180509
  Serious: Yes (Hospitalization)
  Sender: FDA-Public Use
  Company Number: None

PATIENT
  Age: 78 Year
  Sex: Female
  Weight: 93.8 kg

DRUGS (7)
  1. KEFLEX [Concomitant]
     Active Substance: CEPHALEXIN
  2. DETROL LA [Concomitant]
     Active Substance: TOLTERODINE TARTRATE
  3. PRAVACHOL [Concomitant]
     Active Substance: PRAVASTATIN SODIUM
  4. JANUMET [Suspect]
     Active Substance: METFORMIN HYDROCHLORIDE\SITAGLIPTIN PHOSPHATE
     Indication: DIABETES MELLITUS
     Dosage: 50-1,000MG DAILY PO
     Route: 048
  5. MOBIC [Concomitant]
     Active Substance: MELOXICAM
  6. GLIMEPIRIDE. [Suspect]
     Active Substance: GLIMEPIRIDE
     Indication: DIABETES MELLITUS
     Route: 048
  7. NORCO [Concomitant]
     Active Substance: ACETAMINOPHEN\HYDROCODONE BITARTRATE

REACTIONS (7)
  - Hypophagia [None]
  - Urinary tract infection [None]
  - Hypoglycaemia [None]
  - Acute kidney injury [None]
  - Asthenia [None]
  - Therapy cessation [None]
  - Arthralgia [None]

NARRATIVE: CASE EVENT DATE: 20150710
